FAERS Safety Report 20357025 (Version 1)
Quarter: 2022Q1

REPORT INFORMATION
  Report Type: Spontaneous
  Country: US (occurrence: None)
  Receive Date: 20220119
  Receipt Date: 20220119
  Transmission Date: 20220424
  Serious: No
  Sender: FDA-Public Use
  Company Number: None

PATIENT
  Age: 82 Year
  Sex: Male
  Weight: 78.93 kg

DRUGS (2)
  1. ANGIOMAX [Suspect]
     Active Substance: BIVALIRUDIN
     Indication: Product used for unknown indication
  2. ANGIOMAX [Suspect]
     Active Substance: BIVALIRUDIN
     Indication: Product used for unknown indication

REACTIONS (3)
  - Cardiac procedure complication [None]
  - Embedded device [None]
  - Device failure [None]

NARRATIVE: CASE EVENT DATE: 20220113
